FAERS Safety Report 21643327 (Version 5)
Quarter: 2024Q4

REPORT INFORMATION
  Report Type: Report from Study
  Country: KR (occurrence: KR)
  Receive Date: 20221125
  Receipt Date: 20241220
  Transmission Date: 20250114
  Serious: Yes (Other)
  Sender: NOVARTIS
  Company Number: KR-002147023-NVSC2022KR265042

PATIENT
  Sex: Female
  Weight: 63.7 kg

DRUGS (12)
  1. RYDAPT [Suspect]
     Active Substance: MIDOSTAURIN
     Indication: Acute myeloid leukaemia
     Dosage: 50 MG, BID
     Route: 048
     Dates: start: 20220618, end: 20220701
  2. RYDAPT [Suspect]
     Active Substance: MIDOSTAURIN
     Dosage: 50 MG, BID
     Route: 048
     Dates: start: 20220802, end: 20220815
  3. AMOSARTAN [Concomitant]
     Indication: Hypertension
     Dosage: UNK (5/50 MG)
     Route: 048
     Dates: start: 2016
  4. CRESTOR [Concomitant]
     Active Substance: ROSUVASTATIN CALCIUM
     Indication: Hyperlipidaemia
     Dosage: 10 MG
     Route: 048
     Dates: start: 2019, end: 20220913
  5. ALLEGRA-D [Concomitant]
     Active Substance: FEXOFENADINE HYDROCHLORIDE\PSEUDOEPHEDRINE HYDROCHLORIDE
     Indication: Asthma
     Dosage: UNK (60/120 MG)
     Route: 048
     Dates: start: 2022, end: 20220927
  6. SINGULAIR [Concomitant]
     Active Substance: MONTELUKAST SODIUM
     Indication: Asthma
     Dosage: 10 MG
     Route: 048
     Dates: start: 2022
  7. LEXAPRO [Concomitant]
     Active Substance: ESCITALOPRAM OXALATE
     Indication: Depression
     Dosage: 10 MG
     Route: 048
     Dates: start: 2019
  8. DAUNORUBICIN [Concomitant]
     Active Substance: DAUNORUBICIN
     Indication: Acute myeloid leukaemia
     Dosage: 101.4 MG
     Route: 042
     Dates: start: 20220610, end: 20220612
  9. CYTARABINE [Concomitant]
     Active Substance: CYTARABINE
     Indication: Acute myeloid leukaemia
     Dosage: 169 MG
     Route: 042
     Dates: start: 20220610, end: 20220616
  10. CYTARABINE [Concomitant]
     Active Substance: CYTARABINE
     Dosage: 3160 MG
     Route: 042
     Dates: start: 20220726, end: 20220726
  11. CYTARABINE [Concomitant]
     Active Substance: CYTARABINE
     Dosage: 3160 MG
     Route: 042
     Dates: start: 20220728, end: 20220728
  12. CYTARABINE [Concomitant]
     Active Substance: CYTARABINE
     Dosage: 3160 MG
     Route: 042
     Dates: start: 20220730, end: 20220730

REACTIONS (1)
  - Pneumonia klebsiella [Recovered/Resolved]

NARRATIVE: CASE EVENT DATE: 20220810
